FAERS Safety Report 9973984 (Version 2)
Quarter: 2014Q1

REPORT INFORMATION
  Report Type: Report from Study
  Country: US (occurrence: US)
  Receive Date: 20140306
  Receipt Date: 20140306
  Transmission Date: 20141002
  Serious: No
  Sender: FDA-Public Use
  Company Number: US-ABBVIE-11P-163-0852572-00

PATIENT
  Age: 59 Year
  Sex: Male
  Weight: 72.64 kg

DRUGS (28)
  1. HUMIRA 40 MG/0.8 ML PEN [Suspect]
     Indication: CROHN^S DISEASE
     Dosage: (160 MG, LOADING DOSE)
     Route: 058
     Dates: start: 201110, end: 201110
  2. HUMIRA 40 MG/0.8 ML PEN [Suspect]
     Dosage: (80 MG, 2ND LOADING DOSE)
     Dates: start: 201111, end: 201111
  3. HUMIRA 40 MG/0.8 ML PEN [Suspect]
     Dosage: (160 MG, LOADING DOSE)
     Route: 058
     Dates: start: 20120114, end: 20120114
  4. HUMIRA 40 MG/0.8 ML PEN [Suspect]
     Dosage: (80 MG, 2ND LOADING DOSE)
     Route: 058
     Dates: start: 20120128, end: 20120128
  5. HUMIRA 40 MG/0.8 ML PEN [Suspect]
     Route: 058
     Dates: start: 201202
  6. ARIXTRA [Concomitant]
     Indication: ANTICOAGULANT THERAPY
  7. PROMETHAZINE [Concomitant]
     Indication: PRODUCT USED FOR UNKNOWN INDICATION
  8. INDERAL-LA [Concomitant]
     Indication: PRODUCT USED FOR UNKNOWN INDICATION
  9. CALCIUM [Concomitant]
     Indication: PRODUCT USED FOR UNKNOWN INDICATION
  10. VITAMIN B12 [Concomitant]
     Indication: PRODUCT USED FOR UNKNOWN INDICATION
  11. CYMBALTA [Concomitant]
     Indication: MIGRAINE
  12. DEXILANT [Concomitant]
     Indication: PRODUCT USED FOR UNKNOWN INDICATION
  13. GLUCOSAMINE [Concomitant]
     Indication: PRODUCT USED FOR UNKNOWN INDICATION
  14. INDURAL [Concomitant]
     Indication: PRODUCT USED FOR UNKNOWN INDICATION
  15. IRON [Concomitant]
     Indication: PRODUCT USED FOR UNKNOWN INDICATION
  16. MULTIVITAMIN [Concomitant]
     Indication: PRODUCT USED FOR UNKNOWN INDICATION
  17. PROAIR [Concomitant]
     Indication: PRODUCT USED FOR UNKNOWN INDICATION
  18. PROMETHAZINE [Concomitant]
     Indication: PRODUCT USED FOR UNKNOWN INDICATION
  19. PROPRANOLOL [Concomitant]
     Indication: HYPERTENSION
  20. SINGULAIR [Concomitant]
     Indication: PULMONARY EMBOLISM
  21. SINGULAIR [Concomitant]
     Indication: LUNG DISORDER
  22. SYMBICORT [Concomitant]
     Indication: PRODUCT USED FOR UNKNOWN INDICATION
  23. TOPAMAX [Concomitant]
     Indication: MIGRAINE
  24. VITAMIN C [Concomitant]
     Indication: PRODUCT USED FOR UNKNOWN INDICATION
  25. ZYTREC [Concomitant]
     Indication: PRODUCT USED FOR UNKNOWN INDICATION
  26. REGLAN [Concomitant]
     Indication: NAUSEA
  27. OMEPRAZOLE [Concomitant]
     Indication: ANTACID THERAPY
  28. FONDAPARINUX [Concomitant]
     Indication: ANTICOAGULANT THERAPY

REACTIONS (9)
  - Incorrect product storage [Unknown]
  - Poor quality drug administered [Unknown]
  - Product colour issue [Unknown]
  - Liquid product physical issue [Unknown]
  - Influenza like illness [Recovered/Resolved]
  - Headache [Recovered/Resolved]
  - Influenza like illness [Recovered/Resolved]
  - Headache [Recovered/Resolved]
  - Influenza like illness [Recovered/Resolved]
